FAERS Safety Report 8062189-5 (Version None)
Quarter: 2012Q1

REPORT INFORMATION
  Report Type: 
  Country: None (occurrence: None)
  Receive Date: 20120123
  Receipt Date: 20120119
  Transmission Date: 20120608
  Serious: Yes (Death)
  Sender: FDA-Public Use
  Company Number: AU-BRISTOL-MYERS SQUIBB COMPANY-15462328

PATIENT
  Age: 53 Year
  Sex: Male

DRUGS (8)
  1. SPIRIVA [Concomitant]
  2. SPRYCEL [Suspect]
     Indication: CHRONIC MYELOID LEUKAEMIA
     Dates: start: 20070707, end: 20070801
  3. CITALOPRAM HYDROBROMIDE [Concomitant]
  4. IPRATROPIUM BROMIDE [Concomitant]
  5. FLUTICASONE PROPIONATE/SALMETEROL [Concomitant]
  6. PANTOPRAZOLE [Concomitant]
  7. ANPEC [Concomitant]
  8. ASMOL [Concomitant]

REACTIONS (1)
  - EMPHYSEMA [None]
